FAERS Safety Report 7313502-5 (Version None)
Quarter: 2011Q1

REPORT INFORMATION
  Report Type: 
  Country: None (occurrence: None)
  Receive Date: 20110215
  Receipt Date: 20110215
  Transmission Date: 20110831
  Serious: Yes (Other)
  Sender: FDA-Public Use
  Company Number: None

PATIENT
  Age: 78 Year
  Sex: Female

DRUGS (1)
  1. CEFTRIAXONE [Suspect]
     Indication: PRODUCT USED FOR UNKNOWN INDICATION
     Dosage: 2 GRAMS ONCE DAILY IV DRIP
     Route: 041
     Dates: start: 20100801, end: 20110210

REACTIONS (6)
  - HYPOTENSION [None]
  - CHILLS [None]
  - PYREXIA [None]
  - PERIPHERAL COLDNESS [None]
  - NAUSEA [None]
  - INFUSION RELATED REACTION [None]
